FAERS Safety Report 17055864 (Version 4)
Quarter: 2021Q1

REPORT INFORMATION
  Report Type: Spontaneous
  Country: PL (occurrence: PL)
  Receive Date: 20191120
  Receipt Date: 20210120
  Transmission Date: 20210419
  Serious: Yes (Hospitalization, Other)
  Sender: FDA-Public Use
  Company Number: PL-ABBVIE-19K-129-3001454-00

PATIENT
  Age: 71 Year
  Sex: Male

DRUGS (2)
  1. VENCLYXTO [Suspect]
     Active Substance: VENETOCLAX
     Indication: CHRONIC LYMPHOCYTIC LEUKAEMIA
     Route: 048
     Dates: start: 20191023, end: 20191029
  2. VENCLYXTO [Suspect]
     Active Substance: VENETOCLAX
     Route: 048
     Dates: start: 202012

REACTIONS (8)
  - Unevaluable event [Recovering/Resolving]
  - Neutropenia [Recovering/Resolving]
  - Anaemia [Recovered/Resolved]
  - Nausea [Unknown]
  - Lymphatic disorder [Recovered/Resolved]
  - Pancytopenia [Recovered/Resolved]
  - Lymphocyte count decreased [Recovered/Resolved]
  - Thrombocytopenia [Recovered/Resolved]

NARRATIVE: CASE EVENT DATE: 2019
